FAERS Safety Report 8515833-X (Version None)
Quarter: 2012Q3

REPORT INFORMATION
  Report Type: 
  Country: None (occurrence: None)
  Receive Date: 20120717
  Receipt Date: 20120712
  Transmission Date: 20120928
  Serious: Yes (Other)
  Sender: FDA-Public Use
  Company Number: US-PFIZER INC-2012168265

PATIENT
  Sex: Female
  Weight: 61.224 kg

DRUGS (1)
  1. ADVIL [Suspect]
     Dosage: 200 MG, AS NEEDED
     Route: 048
     Dates: end: 20120712

REACTIONS (7)
  - BLOOD CHOLESTEROL INCREASED [None]
  - URTICARIA [None]
  - PHARYNGEAL OEDEMA [None]
  - HYPERSENSITIVITY [None]
  - ASTHMA [None]
  - DYSPNOEA [None]
  - SINUS DISORDER [None]
